FAERS Safety Report 7322688-8 (Version None)
Quarter: 2011Q1

REPORT INFORMATION
  Report Type: 
  Country: None (occurrence: None)
  Receive Date: 20110301
  Receipt Date: 20110223
  Transmission Date: 20110831
  Serious: No
  Sender: FDA-Public Use
  Company Number: US-PFIZER INC-2011040128

PATIENT
  Sex: Female
  Weight: 73 kg

DRUGS (5)
  1. TUMS [Concomitant]
     Dosage: UNK
  2. CHANTIX [Suspect]
     Indication: SMOKING CESSATION THERAPY
     Dosage: 0.5 MG, 1X/DAY
     Route: 048
     Dates: start: 20100920
  3. ALEVE [Concomitant]
     Dosage: UNK
  4. ACETAMINOPHEN [Concomitant]
     Dosage: UNK
  5. CHANTIX [Suspect]
     Dosage: 1 MG, 2X/DAY

REACTIONS (2)
  - FEAR [None]
  - ABNORMAL DREAMS [None]
